FAERS Safety Report 7675442-1 (Version None)
Quarter: 2011Q3

REPORT INFORMATION
  Report Type: 
  Country: None (occurrence: None)
  Receive Date: 20110810
  Receipt Date: 20110805
  Transmission Date: 20111222
  Serious: Yes (Death)
  Sender: FDA-Public Use
  Company Number: MX-SANOFI-AVENTIS-2011SA050229

PATIENT
  Age: 70 Year
  Sex: Male

DRUGS (7)
  1. ALL OTHER THERAPEUTIC PRODUCTS [Concomitant]
     Indication: PROSTATE CANCER
     Route: 065
     Dates: start: 20060101, end: 20110719
  2. PLAVIX [Suspect]
     Indication: THROMBOSIS PROPHYLAXIS
     Route: 048
     Dates: start: 20030101, end: 20110201
  3. IRBESARTAN AND HYDROCHLOROTHIAZIDE [Suspect]
     Dosage: FREQUENCY: INTERMITTENTLY
     Route: 048
     Dates: start: 20000101, end: 20110501
  4. PLAVIX [Suspect]
     Route: 048
     Dates: start: 20110201, end: 20110719
  5. DIURETICS [Concomitant]
     Route: 048
     Dates: start: 20000101, end: 20110501
  6. ANTINEOPLASTIC AGENTS [Concomitant]
     Indication: PROSTATE CANCER
     Route: 065
     Dates: start: 20060101, end: 20110719
  7. IRBESARTAN [Suspect]
     Route: 048
     Dates: start: 20000101, end: 20110501

REACTIONS (6)
  - LYMPHOEDEMA [None]
  - PROSTATE CANCER [None]
  - ONCOLOGIC COMPLICATION [None]
  - CEREBROVASCULAR ACCIDENT [None]
  - HYPOTENSION [None]
  - THROMBOSIS [None]
